FAERS Safety Report 8018665-4 (Version None)
Quarter: 2012Q1

REPORT INFORMATION
  Report Type: 
  Country: None (occurrence: None)
  Receive Date: 20120103
  Receipt Date: 20120103
  Transmission Date: 20120608
  Serious: No
  Sender: FDA-Public Use
  Company Number: None

PATIENT
  Sex: Female
  Weight: 68.038 kg

DRUGS (1)
  1. RESTASIS [Suspect]
     Indication: DRY EYE
     Dosage: 1 DROP
     Route: 047
     Dates: start: 20100901, end: 20111201

REACTIONS (7)
  - INSTILLATION SITE PAIN [None]
  - SINUS DISORDER [None]
  - SWELLING [None]
  - OESOPHAGITIS [None]
  - INSTILLATION SITE ABNORMAL SENSATION [None]
  - INFLAMMATION OF LACRIMAL PASSAGE [None]
  - VISUAL IMPAIRMENT [None]
